FAERS Safety Report 23100570 (Version 2)
Quarter: 2023Q4

REPORT INFORMATION
  Report Type: Spontaneous
  Country: IN (occurrence: IN)
  Receive Date: 20231024
  Receipt Date: 20231027
  Transmission Date: 20240110
  Serious: Yes (Hospitalization, Other)
  Sender: FDA-Public Use
  Company Number: IN-PFIZER INC-PV202300171781

PATIENT
  Sex: Male

DRUGS (1)
  1. LORLATINIB [Suspect]
     Active Substance: LORLATINIB
     Dosage: 100 MG
     Route: 048
     Dates: start: 20231011

REACTIONS (8)
  - Ulcer [Unknown]
  - Haemoglobin decreased [Unknown]
  - Haematochezia [Unknown]
  - Nausea [Unknown]
  - Burning sensation [Unknown]
  - Hyperchlorhydria [Unknown]
  - Diarrhoea [Unknown]
  - Asthenia [Unknown]
